FAERS Safety Report 9683653 (Version 2)
Quarter: 2013Q4

REPORT INFORMATION
  Report Type: Report from Study
  Country: CA (occurrence: CA)
  Receive Date: 20131112
  Receipt Date: 20131112
  Transmission Date: 20140711
  Serious: Yes (Other)
  Sender: FDA-Public Use
  Company Number: CA-JNJFOC-20130914757

PATIENT
  Age: 30 Year
  Sex: Male
  Weight: 63 kg

DRUGS (4)
  1. REMICADE [Suspect]
     Indication: CROHN^S DISEASE
     Route: 042
     Dates: start: 20101007
  2. IMURAN [Concomitant]
     Dosage: EVERY DAY
     Route: 065
  3. SYNTHROID [Concomitant]
     Indication: HYPOTHYROIDISM
     Route: 065
  4. PROSCAR [Concomitant]
     Route: 065

REACTIONS (4)
  - Cholelithiasis [Not Recovered/Not Resolved]
  - Liver function test abnormal [Unknown]
  - Diarrhoea [Unknown]
  - Abdominal distension [Unknown]
